FAERS Safety Report 7227932-3 (Version None)
Quarter: 2011Q1

REPORT INFORMATION
  Report Type: 
  Country: None (occurrence: None)
  Receive Date: 20110114
  Receipt Date: 20110112
  Transmission Date: 20110831
  Serious: Yes (Death)
  Sender: FDA-Public Use
  Company Number: GR-PFIZER INC-2011007397

PATIENT
  Age: 83 Year
  Sex: Male
  Weight: 80 kg

DRUGS (9)
  1. COLIMYCIN [Suspect]
     Indication: ABDOMINAL INFECTION
     Dosage: 1000000 ,6X/DAY
     Route: 042
     Dates: start: 20090506, end: 20090513
  2. TIGECYCLINE [Suspect]
     Indication: ABDOMINAL INFECTION
     Dosage: 100 MG, 2X/DAY
     Route: 042
     Dates: start: 20090513, end: 20090519
  3. CLINDAMYCIN PHOSPHATE [Suspect]
     Indication: ABDOMINAL INFECTION
     Dosage: 600 MG, 3X/DAY
     Route: 042
     Dates: start: 20090502, end: 20090505
  4. METRONIDAZOLE [Suspect]
     Indication: ABDOMINAL INFECTION
     Dosage: 500 MG, 3X/DAY
     Route: 042
     Dates: start: 20090508, end: 20090516
  5. LEVOFLOXACIN [Suspect]
     Indication: ABDOMINAL INFECTION
     Dosage: 500 MG, 2X/DAY
     Route: 042
     Dates: start: 20090502, end: 20090506
  6. COLIMYCIN [Suspect]
     Dosage: 1000000 UNK, 4X/DAY
     Route: 042
     Dates: start: 20100514, end: 20100516
  7. COLIMYCIN [Suspect]
     Dosage: 1000000 UNK, 3X/DAY
     Route: 042
     Dates: start: 20100517, end: 20100519
  8. LINEZOLID [Suspect]
     Indication: ABDOMINAL INFECTION
     Dosage: 600 MG, 2X/DAY
     Route: 042
     Dates: start: 20090504, end: 20090513
  9. METRONIDAZOLE [Suspect]
     Dosage: 500 MG, 2X/DAY
     Route: 042
     Dates: start: 20090517, end: 20090519

REACTIONS (1)
  - DEATH [None]
